FAERS Safety Report 5534140-0 (Version None)
Quarter: 2007Q4

REPORT INFORMATION
  Report Type: 
  Country: None (occurrence: None)
  Receive Date: 20071205
  Receipt Date: 20071126
  Transmission Date: 20080405
  Serious: Yes (Hospitalization)
  Sender: FDA-Public Use
  Company Number: FR-BRISTOL-MYERS SQUIBB COMPANY-14003818

PATIENT
  Age: 79 Year
  Sex: Male

DRUGS (6)
  1. GLUCOPHAGE [Suspect]
     Indication: TYPE 2 DIABETES MELLITUS
     Route: 048
  2. AMARYL [Suspect]
     Dosage: STRENGTH:2MG TAB.
     Route: 048
  3. ENALAPRIL MALEATE [Suspect]
     Dosage: STRENGTH: 20MG TAB.
     Route: 048
  4. TAHOR [Suspect]
     Dosage: STRENGTH: 20MG,TAB.
     Route: 048
  5. PROSCAR [Suspect]
     Dosage: STRENGTH: 5MG TAB.
     Route: 048
  6. KARDEGIC [Suspect]
     Dosage: STRENGTH: 75MG,POWDER FOR ORAL SOLUTION.
     Route: 048

REACTIONS (2)
  - CYTOLYTIC HEPATITIS [None]
  - HEPATITIS CHOLESTATIC [None]
